FAERS Safety Report 9753729 (Version 2)
Quarter: 2015Q3

REPORT INFORMATION
  Report Type: Spontaneous
  Country: US (occurrence: US)
  Receive Date: 20131213
  Receipt Date: 20150805
  Transmission Date: 20151125
  Serious: No
  Sender: FDA-Public Use
  Company Number: US-GILEAD-2010-0026603

PATIENT
  Age: 59 Year
  Sex: Male

DRUGS (14)
  1. FOSAMAX [Concomitant]
     Active Substance: ALENDRONATE SODIUM
  2. MICARDIS [Concomitant]
     Active Substance: TELMISARTAN
  3. PRILOSEC [Concomitant]
     Active Substance: OMEPRAZOLE MAGNESIUM
  4. TOPROL XL [Concomitant]
     Active Substance: METOPROLOL SUCCINATE
  5. PREDNISONE. [Concomitant]
     Active Substance: PREDNISONE
  6. LETAIRIS [Suspect]
     Active Substance: AMBRISENTAN
     Indication: PULMONARY ARTERIAL HYPERTENSION
     Route: 048
     Dates: start: 20090303
  7. AMIODARONE HCL [Concomitant]
     Active Substance: AMIODARONE HYDROCHLORIDE
  8. ADVAIR HFA [Concomitant]
     Active Substance: FLUTICASONE PROPIONATE\SALMETEROL XINAFOATE
  9. DIGOXIN. [Concomitant]
     Active Substance: DIGOXIN
  10. FUROSEMIDE. [Concomitant]
     Active Substance: FUROSEMIDE
  11. FERROUS SULFATE [Concomitant]
     Active Substance: FERROUS SULFATE\FERROUS SULFATE, DRIED
  12. IPRATROPIUM BROMIDE/SALBUTAMOL SULFATE [Concomitant]
  13. FOLIC ACID. [Concomitant]
     Active Substance: FOLIC ACID
  14. VITAMIN B6 [Concomitant]
     Active Substance: PYRIDOXINE HYDROCHLORIDE

REACTIONS (1)
  - Dizziness [Unknown]
